FAERS Safety Report 5652332-7 (Version None)
Quarter: 2008Q1

REPORT INFORMATION
  Report Type: 
  Country: None (occurrence: None)
  Receive Date: 20080131
  Receipt Date: 20071015
  Transmission Date: 20080703
  Serious: No
  Sender: FDA-Public Use
  Company Number: US200710004005

PATIENT
  Age: 25 Year
  Sex: Female

DRUGS (5)
  1. BYETTA [Suspect]
     Indication: POLYCYSTIC OVARIES
     Dosage: SEE IMAGE
     Route: 058
     Dates: start: 20070601, end: 20070601
  2. BYETTA [Suspect]
     Indication: POLYCYSTIC OVARIES
     Dosage: SEE IMAGE
     Route: 058
     Dates: start: 20070501
  3. BYETTA [Suspect]
     Indication: POLYCYSTIC OVARIES
     Dosage: SEE IMAGE
     Route: 058
     Dates: start: 20070301
  4. BYETTA [Suspect]
     Indication: POLYCYSTIC OVARIES
     Dosage: SEE IMAGE
     Route: 058
     Dates: start: 20070901
  5. METFORMIN HCL [Concomitant]

REACTIONS (5)
  - FEELING HOT [None]
  - NAUSEA [None]
  - VOMITING [None]
  - WEIGHT DECREASED [None]
  - WEIGHT INCREASED [None]
